FAERS Safety Report 4878569-2 (Version None)
Quarter: 2006Q1

REPORT INFORMATION
  Report Type: 
  Country: None (occurrence: None)
  Receive Date: 20060112
  Receipt Date: 20060103
  Transmission Date: 20060701
  Serious: Yes (Other)
  Sender: FDA-Public Use
  Company Number: 2006UW00199

PATIENT
  Sex: Male

DRUGS (11)
  1. IRESSA [Suspect]
     Indication: OESOPHAGEAL CANCER METASTATIC
     Route: 048
     Dates: start: 20030612, end: 20030623
  2. ASPIRIN [Concomitant]
  3. ASCORBIC ACID [Concomitant]
  4. K-DUR 10 [Concomitant]
  5. VITAMIN E [Concomitant]
  6. ATIVAN [Concomitant]
  7. SKELAXIN [Concomitant]
  8. COZAAR [Concomitant]
  9. LIPITOR [Concomitant]
  10. CELEBREX [Concomitant]
  11. NEXIUM [Concomitant]

REACTIONS (1)
  - DEEP VEIN THROMBOSIS [None]
